FAERS Safety Report 5511420-6 (Version None)
Quarter: 2007Q4

REPORT INFORMATION
  Report Type: 
  Country: None (occurrence: None)
  Receive Date: 20071109
  Receipt Date: 20071030
  Transmission Date: 20080405
  Serious: Yes (Hospitalization, Other)
  Sender: FDA-Public Use
  Company Number: US-ROCHE-486491

PATIENT
  Age: 63 Year
  Sex: Male

DRUGS (15)
  1. CELLCEPT [Suspect]
     Indication: PROPHYLAXIS AGAINST TRANSPLANT REJECTION
     Route: 065
     Dates: start: 20060227
  2. CELLCEPT [Suspect]
     Route: 065
  3. RAPAMUNE [Interacting]
     Indication: PROPHYLAXIS AGAINST TRANSPLANT REJECTION
     Route: 065
     Dates: start: 20060227, end: 20070907
  4. COREG [Suspect]
     Route: 065
  5. GLIPIZIDE [Concomitant]
  6. OMEPRAZOLE [Concomitant]
  7. LISINOPRIL [Concomitant]
  8. SIMVASTIN [Concomitant]
  9. LANTUS [Concomitant]
  10. NOVOLOG [Concomitant]
     Dosage: TAKEN WITH MEALS
  11. ASPIRIN [Concomitant]
     Dosage: .81
  12. FOLIC ACID [Concomitant]
  13. MULTI VIT [Concomitant]
  14. CALCIUM [Concomitant]
  15. DIGESTIVE ENZYMES [Concomitant]

REACTIONS (7)
  - CARDIAC FAILURE CONGESTIVE [None]
  - CEREBROVASCULAR ACCIDENT [None]
  - DIABETES MELLITUS INADEQUATE CONTROL [None]
  - DRUG INTERACTION [None]
  - HALLUCINATION [None]
  - INTRACARDIAC THROMBUS [None]
  - MACULAR OEDEMA [None]
